FAERS Safety Report 9298372 (Version 1)
Quarter: 2013Q2

REPORT INFORMATION
  Report Type: Spontaneous
  Country: US (occurrence: US)
  Receive Date: 20130520
  Receipt Date: 20130520
  Transmission Date: 20140414
  Serious: No
  Sender: FDA-Public Use
  Company Number: US-PFIZER INC-2013152529

PATIENT
  Sex: Female

DRUGS (2)
  1. CHILDREN^S ADVIL [Suspect]
     Dosage: UNK
     Route: 048
     Dates: start: 20130414
  2. CLARITIN [Suspect]
     Dosage: 5 ML, UNK
     Route: 048
     Dates: start: 20130414

REACTIONS (1)
  - Sinusitis [Unknown]
